FAERS Safety Report 9164090 (Version 3)
Quarter: 2013Q2

REPORT INFORMATION
  Report Type: Report from Study
  Country: JP (occurrence: JP)
  Receive Date: 20130314
  Receipt Date: 20130414
  Transmission Date: 20140414
  Serious: Yes (Hospitalization)
  Sender: FDA-Public Use
  Company Number: JP-BRISTOL-MYERS SQUIBB COMPANY-17472820

PATIENT
  Age: 70 Year
  Sex: Male

DRUGS (3)
  1. IPILIMUMAB [Suspect]
     Indication: NON-SMALL CELL LUNG CANCER
     Route: 042
     Dates: start: 20121220, end: 20130207
  2. CARBOPLATIN [Suspect]
     Indication: NON-SMALL CELL LUNG CANCER
     Dosage: AUC IV
     Route: 042
     Dates: start: 20121107, end: 20130207
  3. PACLITAXEL [Suspect]
     Indication: NON-SMALL CELL LUNG CANCER
     Route: 042
     Dates: start: 20121107, end: 20130207

REACTIONS (1)
  - Pneumonitis [Recovered/Resolved]
